FAERS Safety Report 12422089 (Version 3)
Quarter: 2016Q3

REPORT INFORMATION
  Report Type: Report from Study
  Country: US (occurrence: US)
  Receive Date: 20160531
  Receipt Date: 20160926
  Transmission Date: 20161109
  Serious: Yes (Other)
  Sender: FDA-Public Use
  Company Number: US-ROCHE-1713103

PATIENT
  Age: 79 Year
  Sex: Female
  Weight: 46.5 kg

DRUGS (4)
  1. NAB-PACLITAXEL [Suspect]
     Active Substance: PACLITAXEL
     Indication: NON-SMALL CELL LUNG CANCER
     Dosage: MOST RECENT DOSES OF NAB-PACLITAXEL PRIOR TO ELEVATED ALT, ELEVATED AST ONSET WAS 139 MG ON 19/JAN/2
     Route: 042
     Dates: start: 20160105
  2. ATEZOLIZUMAB [Suspect]
     Active Substance: ATEZOLIZUMAB
     Indication: NON-SMALL CELL LUNG CANCER
     Dosage: MOST RECENT DOSE OF ATEZOLIZUMAB PRIOR TO DECREASED WBC, ELEVATED AST AND ELEVATED ALT ONSET WAS 120
     Route: 042
     Dates: start: 20160105
  3. CARBOPLATIN. [Suspect]
     Active Substance: CARBOPLATIN
     Indication: NON-SMALL CELL LUNG CANCER
     Dosage: MOST RECENT DOSE OF CARBOPLATIN PRIOR TO DECREASED WBC, ELEVATED ALT AND ELEVATED AST WAS  ON 05/JAN
     Route: 042
     Dates: start: 20160105
  4. FOSAMAX [Concomitant]
     Active Substance: ALENDRONATE SODIUM
     Indication: OSTEOPOROSIS
     Route: 065
     Dates: start: 20130522

REACTIONS (5)
  - Blood alkaline phosphatase increased [Recovered/Resolved]
  - Neutrophil count decreased [Recovered/Resolved]
  - Aspartate aminotransferase increased [Recovered/Resolved]
  - White blood cell count decreased [Recovered/Resolved]
  - Alanine aminotransferase increased [Recovered/Resolved]

NARRATIVE: CASE EVENT DATE: 20160111
